FAERS Safety Report 4535263-5 (Version None)
Quarter: 2004Q4

REPORT INFORMATION
  Report Type: 
  Country: None (occurrence: None)
  Receive Date: 20041222
  Receipt Date: 20041215
  Transmission Date: 20050328
  Serious: Yes (Death)
  Sender: FDA-Public Use
  Company Number: US-NOVOPROD-241125

PATIENT
  Sex: Male

DRUGS (2)
  1. NOVOSEVEN [Suspect]
     Indication: COAGULOPATHY
     Dosage: 20 UG/KG,  2 DOSES
     Route: 042
     Dates: start: 20040201, end: 20040201
  2. PLASMA [Concomitant]
     Indication: COAGULOPATHY
     Dates: start: 20040201, end: 20040201

REACTIONS (1)
  - DISEASE PROGRESSION [None]
